FAERS Safety Report 24862746 (Version 3)
Quarter: 2025Q1

REPORT INFORMATION
  Report Type: Spontaneous
  Country: US (occurrence: US)
  Receive Date: 20250120
  Receipt Date: 20250124
  Transmission Date: 20250409
  Serious: No
  Sender: ALEXION PHARMACEUTICALS
  Company Number: US-AstraZeneca-CH-00787083AP

PATIENT

DRUGS (1)
  1. AIRSUPRA [Suspect]
     Active Substance: ALBUTEROL SULFATE\BUDESONIDE
     Route: 065

REACTIONS (12)
  - Coronavirus test [Unknown]
  - Influenza [Unknown]
  - Dyspnoea [Unknown]
  - Incorrect dose administered [Unknown]
  - Body temperature [Unknown]
  - Wrong technique in device usage process [Unknown]
  - Mouth haemorrhage [Unknown]
  - Device malfunction [Unknown]
  - Feeling abnormal [Unknown]
  - Body temperature [Unknown]
  - Adverse event [Unknown]
  - Listeria test [Unknown]
